FAERS Safety Report 17577901 (Version 2)
Quarter: 2020Q2

REPORT INFORMATION
  Report Type: Spontaneous
  Country: US (occurrence: US)
  Receive Date: 20200324
  Receipt Date: 20200402
  Transmission Date: 20200713
  Serious: Yes (Other)
  Sender: FDA-Public Use
  Company Number: US-PFIZER INC-2020123301

PATIENT
  Age: 54 Year
  Sex: Female

DRUGS (4)
  1. SUMATRIPTAN. [Concomitant]
     Active Substance: SUMATRIPTAN
     Indication: MIGRAINE
     Dosage: UNK
  2. IBUPROFEN. [Suspect]
     Active Substance: IBUPROFEN
     Dosage: UNK (ALMOST DAILY FOR AROUND A YEAR WITH DAILY DOSES TOTALING TO AROUND 2.4 GRAMS A DAY)
  3. POTASSIUM [Concomitant]
     Active Substance: POTASSIUM
     Indication: MUSCULAR WEAKNESS
     Dosage: 60 MEQ, UNK
     Route: 048
  4. POTASSIUM [Concomitant]
     Active Substance: POTASSIUM
     Dosage: 300 MEQ, UNK

REACTIONS (3)
  - Renal tubular acidosis [Recovering/Resolving]
  - Overdose [Unknown]
  - Potassium wasting nephropathy [Recovering/Resolving]
